FAERS Safety Report 7313634-1 (Version None)
Quarter: 2011Q1

REPORT INFORMATION
  Report Type: 
  Country: None (occurrence: None)
  Receive Date: 20110225
  Receipt Date: 20110223
  Transmission Date: 20110831
  Serious: Yes (Hospitalization, Other)
  Sender: FDA-Public Use
  Company Number: US-ASTRAZENECA-2007UW02127

PATIENT
  Age: 43 Year
  Sex: Female
  Weight: 98.4 kg

DRUGS (32)
  1. SEROQUEL [Suspect]
     Indication: TACHYPHRENIA
     Route: 048
     Dates: start: 20020208
  2. SEROQUEL [Suspect]
     Indication: BIPOLAR DISORDER
     Route: 048
     Dates: start: 20020208
  3. SEROQUEL [Suspect]
     Route: 048
     Dates: start: 20040522
  4. DEPAKOTE [Concomitant]
     Route: 048
     Dates: start: 20071101
  5. ESTRACE [Concomitant]
     Dates: start: 20040522
  6. GABITRIL [Concomitant]
     Dates: start: 20040522
  7. PREDNISONE [Concomitant]
     Dates: start: 20050825
  8. DEPAKOTE [Concomitant]
     Route: 048
     Dates: start: 20030401
  9. ALLEGRA [Concomitant]
     Dates: start: 20050416
  10. SEROQUEL [Suspect]
     Route: 048
     Dates: start: 20021201, end: 20030101
  11. SEROQUEL [Suspect]
     Route: 048
     Dates: start: 20040522
  12. DEPAKOTE [Concomitant]
     Dates: start: 20050930
  13. LEXAPRO [Concomitant]
     Dates: start: 20040522
  14. LOVASTATIN [Concomitant]
     Dates: start: 20040522
  15. PROZAC [Concomitant]
     Dosage: 20 MG - 60 MG
     Route: 048
     Dates: start: 19970130
  16. MONOPRIL [Concomitant]
     Indication: BLOOD PRESSURE
     Dates: start: 20030324
  17. HYDROCODONE BITARTRATE + ACETAMINOPHEN [Concomitant]
     Dosage: 7.5/325-5/500
     Dates: start: 20040503
  18. CEPHALEXIN [Concomitant]
     Dates: start: 20050819
  19. CARBAMAZEPINE [Concomitant]
     Dates: start: 20050930
  20. SEROQUEL [Suspect]
     Route: 048
     Dates: start: 20071101
  21. LEXAPRO [Concomitant]
     Route: 048
     Dates: start: 20070101
  22. ACTOS [Concomitant]
     Indication: BLOOD GLUCOSE
     Dosage: 15 MG - 50 MG
     Dates: start: 20030324
  23. METHYLPREDNISOLONE [Concomitant]
     Dates: start: 20050813
  24. SEROQUEL [Suspect]
     Route: 048
     Dates: start: 20021201, end: 20030101
  25. SEROQUEL [Suspect]
     Route: 048
     Dates: start: 20030324
  26. SEROQUEL [Suspect]
     Route: 048
     Dates: start: 20071101
  27. LEXAPRO [Concomitant]
     Dosage: 10 MG - 20 MG
     Route: 048
     Dates: start: 20021203
  28. ESTRACE [Concomitant]
     Dosage: 1 - 2 MG
     Dates: start: 19970130
  29. SEROQUEL [Suspect]
     Route: 048
     Dates: start: 20030324
  30. REDUX [Concomitant]
     Indication: WEIGHT CONTROL
     Route: 048
     Dates: start: 19950101
  31. HYDROXYZINE PAM [Concomitant]
     Dates: start: 20050823
  32. HYDROXYZINE HCL [Concomitant]
     Dates: start: 20050921

REACTIONS (10)
  - BREAST PAIN [None]
  - PHARYNGITIS STREPTOCOCCAL [None]
  - BLOOD CHOLESTEROL INCREASED [None]
  - GASTRIC DISORDER [None]
  - TYPE 2 DIABETES MELLITUS [None]
  - BIOPSY BREAST [None]
  - BREAST DISORDER [None]
  - BIOPSY SKIN [None]
  - VISION BLURRED [None]
  - BLOOD TRIGLYCERIDES INCREASED [None]
